FAERS Safety Report 6383684-0 (Version None)
Quarter: 2009Q3

REPORT INFORMATION
  Report Type: 
  Country: None (occurrence: None)
  Receive Date: 20090928
  Receipt Date: 20090911
  Transmission Date: 20100115
  Serious: Yes (Other)
  Sender: FDA-Public Use
  Company Number: DSA_41704_2009

PATIENT
  Sex: Female

DRUGS (5)
  1. DILTIAZEM HCL [Suspect]
     Indication: HYPERTENSION
     Dosage: 200 MG, FREQUENCH UNSPECIFIED ORAL
     Route: 048
     Dates: start: 20061201
  2. OLMESARTAN MEDOXOMIL [Suspect]
     Indication: DRUG USE FOR UNKNOWN INDICATION
     Dosage: 20/25 MG DAILY ORAL
     Route: 048
     Dates: start: 20070318, end: 20070512
  3. ROSUVASTATIN CALCIUM [Concomitant]
  4. ROSIGLITAZONE [Concomitant]
  5. LORAZEPAM [Concomitant]

REACTIONS (2)
  - HYPOTENSION [None]
  - RECTAL HAEMORRHAGE [None]
